FAERS Safety Report 9722455 (Version 1)
Quarter: 2013Q4

REPORT INFORMATION
  Report Type: Report from Study
  Country: FR (occurrence: FR)
  Receive Date: 20131202
  Receipt Date: 20131202
  Transmission Date: 20140711
  Serious: Yes (Other)
  Sender: FDA-Public Use
  Company Number: PHHO2013FR015564

PATIENT
  Sex: 0

DRUGS (7)
  1. AFINITOR [Suspect]
     Indication: TRANSITIONAL CELL CARCINOMA
     Dosage: 10 MG, UNK
     Route: 048
     Dates: start: 20130502
  2. OXYCONTIN [Concomitant]
     Dosage: BID
  3. PROZAC [Concomitant]
     Indication: DEPRESSION
     Dosage: 1 DF (TABLET), A DAY
     Route: 048
  4. INEXIUM//ESOMEPRAZOLE MAGNESIUM [Concomitant]
     Dosage: 1 DF (TABLET 40MG), A DAY
     Route: 048
  5. LAROXYL [Concomitant]
  6. ZOLPIDEM [Concomitant]
     Dosage: HALF A TABLET A DAY
  7. SPIRULINA [Concomitant]
     Dosage: 3 DF (CAPSULES), A DAY

REACTIONS (1)
  - Gamma-glutamyltransferase increased [Not Recovered/Not Resolved]
